FAERS Safety Report 7096059-6 (Version None)
Quarter: 2010Q4

REPORT INFORMATION
  Report Type: 
  Country: None (occurrence: None)
  Receive Date: 20101101
  Receipt Date: 20101021
  Transmission Date: 20110411
  Serious: Yes (Other)
  Sender: FDA-Public Use
  Company Number: 2010JP006160

PATIENT
  Age: 49 Year
  Sex: Female

DRUGS (2)
  1. PROGRAF [Suspect]
     Indication: LUPUS NEPHRITIS
     Dosage: 3 MG,
  2. PREDNISOLONE [Concomitant]

REACTIONS (2)
  - CEREBROVASCULAR SPASM [None]
  - REVERSIBLE POSTERIOR LEUKOENCEPHALOPATHY SYNDROME [None]
